FAERS Safety Report 19738626 (Version 2)
Quarter: 2021Q3

REPORT INFORMATION
  Report Type: Report from Study
  Country: IT (occurrence: IT)
  Receive Date: 20210823
  Receipt Date: 20210903
  Transmission Date: 20211014
  Serious: Yes (Hospitalization, Other)
  Sender: FDA-Public Use
  Company Number: IT-MYLANLABS-2021M1054111

PATIENT
  Age: 80 Year
  Sex: Female

DRUGS (6)
  1. TOVANOR BREEZHALER [Concomitant]
     Active Substance: GLYCOPYRROLATE
     Dosage: UNK
  2. BRUFEN [Suspect]
     Active Substance: IBUPROFEN
     Indication: PAIN IN EXTREMITY
     Dosage: UNK
     Route: 048
  3. FLUIMUCIL [Concomitant]
     Active Substance: ACETYLCYSTEINE
     Dosage: UNK
  4. CIRCADIN [Concomitant]
     Active Substance: MELATONIN
     Dosage: UNK
  5. PLASIL                             /00041901/ [Concomitant]
     Active Substance: METOCLOPRAMIDE
     Dosage: UNK
  6. LEXOTAN [Concomitant]
     Active Substance: BROMAZEPAM
     Dosage: UNK

REACTIONS (2)
  - Iron deficiency anaemia [Recovering/Resolving]
  - Drug abuse [Recovering/Resolving]

NARRATIVE: CASE EVENT DATE: 20210109
